FAERS Safety Report 5474624-7 (Version None)
Quarter: 2007Q3

REPORT INFORMATION
  Report Type: 
  Country: None (occurrence: None)
  Receive Date: 20070831
  Receipt Date: 20070626
  Transmission Date: 20080115
  Serious: No
  Sender: FDA-Public Use
  Company Number: 240711

PATIENT
  Sex: Female

DRUGS (2)
  1. LUCENTIS [Suspect]
     Indication: MACULAR DEGENERATION
     Dosage: 1/MONTH, INTRAVITREAL
     Dates: start: 20070201
  2. MEDICATION (UNK INGREDIENT) (GENERIC COMPONENT (S) NOT KNOWN) [Concomitant]

REACTIONS (1)
  - FOREIGN BODY SENSATION IN EYES [None]
